FAERS Safety Report 15387901 (Version 2)
Quarter: 2018Q4

REPORT INFORMATION
  Report Type: Report from Study
  Country: FR (occurrence: FR)
  Receive Date: 20180914
  Receipt Date: 20181108
  Transmission Date: 20190204
  Serious: Yes (Hospitalization)
  Sender: FDA-Public Use
  Company Number: FR-TESARO, INC-FR-2018TSO04577

PATIENT

DRUGS (2)
  1. NIRAPARIB [Suspect]
     Active Substance: NIRAPARIB
     Indication: PROSTATE CANCER METASTATIC
     Dosage: 300 MG, QD
     Route: 048
     Dates: start: 20180716, end: 20180830
  2. NIRAPARIB [Suspect]
     Active Substance: NIRAPARIB
     Dosage: UNK

REACTIONS (1)
  - Gastritis [Recovered/Resolved]

NARRATIVE: CASE EVENT DATE: 20180829
